FAERS Safety Report 6196091-0 (Version None)
Quarter: 2009Q2

REPORT INFORMATION
  Report Type: 
  Country: None (occurrence: None)
  Receive Date: 20090520
  Receipt Date: 20090513
  Transmission Date: 20091009
  Serious: Yes (Hospitalization)
  Sender: FDA-Public Use
  Company Number: JP-JNJFOC-20090503928

PATIENT
  Age: 75 Year
  Sex: Male

DRUGS (3)
  1. CRAVIT [Suspect]
     Indication: NASOPHARYNGITIS
     Route: 048
  2. BANAN [Suspect]
     Indication: NASOPHARYNGITIS
     Route: 048
  3. PELEX [Concomitant]
     Route: 065

REACTIONS (2)
  - GLOSSODYNIA [None]
  - TOXIC SKIN ERUPTION [None]
